FAERS Safety Report 6836476-X (Version None)
Quarter: 2010Q3

REPORT INFORMATION
  Report Type: 
  Country: None (occurrence: None)
  Receive Date: 20100713
  Receipt Date: 20100622
  Transmission Date: 20110219
  Serious: Yes (Death)
  Sender: FDA-Public Use
  Company Number: JP-SANOFI-AVENTIS-2010SA027662

PATIENT
  Age: 79 Year
  Sex: Female
  Weight: 49 kg

DRUGS (17)
  1. PLAVIX [Suspect]
     Route: 048
     Dates: start: 20100106, end: 20100106
  2. PLAVIX [Suspect]
     Route: 048
     Dates: start: 20100107, end: 20100121
  3. ASPIRIN [Concomitant]
     Route: 048
     Dates: start: 20100106, end: 20100106
  4. ASPIRIN [Concomitant]
     Route: 048
     Dates: start: 20100107
  5. HEPARIN [Concomitant]
     Dosage: DOSE:10000 UNIT(S)
     Route: 042
     Dates: start: 20100106, end: 20100109
  6. HANP [Concomitant]
     Route: 051
     Dates: start: 20100106, end: 20100112
  7. TAKEPRON [Concomitant]
     Indication: PROPHYLAXIS
     Route: 048
     Dates: start: 20100107
  8. ITAVASTATIN [Concomitant]
     Route: 048
     Dates: start: 20100107
  9. ARTIST [Concomitant]
     Route: 048
     Dates: start: 20100107, end: 20100108
  10. INOVAN [Concomitant]
     Route: 051
     Dates: start: 20100108, end: 20100119
  11. MAINTATE [Concomitant]
     Route: 048
     Dates: start: 20100109
  12. LIDOCAINE [Concomitant]
     Route: 051
     Dates: start: 20100108, end: 20100108
  13. DOBUTAMINE HCL [Concomitant]
     Route: 051
     Dates: start: 20100109, end: 20100120
  14. LASIX [Concomitant]
     Route: 051
     Dates: start: 20100112, end: 20100112
  15. LASIX [Concomitant]
     Route: 051
     Dates: start: 20100113, end: 20100119
  16. LASIX [Concomitant]
     Route: 048
     Dates: start: 20100120
  17. SPIRONOLACTONE [Concomitant]
     Route: 048
     Dates: start: 20100120

REACTIONS (1)
  - ARRHYTHMIA [None]
